FAERS Safety Report 5755890-7 (Version None)
Quarter: 2008Q2

REPORT INFORMATION
  Report Type: 
  Country: None (occurrence: None)
  Receive Date: 20080528
  Receipt Date: 20080508
  Transmission Date: 20081010
  Serious: Yes (Death)
  Sender: FDA-Public Use
  Company Number: 2008AL004137

PATIENT
  Age: 87 Year
  Sex: Male

DRUGS (4)
  1. DIGOXIN [Suspect]
     Indication: DRUG USE FOR UNKNOWN INDICATION
     Dosage: 0.25MG DAILY PO
     Route: 048
  2. HYDROCHLOROTHIAZIDE [Concomitant]
  3. K-DUR [Concomitant]
  4. COUMADIN [Concomitant]

REACTIONS (3)
  - DYSPNOEA [None]
  - PALLOR [None]
  - PULSE ABSENT [None]
